FAERS Safety Report 24996352 (Version 1)
Quarter: 2025Q1

REPORT INFORMATION
  Report Type: Spontaneous
  Country: US (occurrence: None)
  Receive Date: 20250221
  Receipt Date: 20250221
  Transmission Date: 20250408
  Serious: No
  Sender: INCYTE
  Company Number: US-INCYTE CORPORATION-2025IN001576

PATIENT
  Age: 68 Year

DRUGS (2)
  1. JAKAFI [Suspect]
     Active Substance: RUXOLITINIB
     Indication: Polycythaemia vera
     Route: 065
  2. BESREMI [Concomitant]
     Active Substance: ROPEGINTERFERON ALFA-2B-NJFT
     Indication: Product used for unknown indication
     Route: 065

REACTIONS (7)
  - Photophobia [Unknown]
  - Fatigue [Unknown]
  - Post-acute COVID-19 syndrome [Unknown]
  - Respiratory alkalosis [Unknown]
  - Mental disorder [Unknown]
  - Decreased activity [Unknown]
  - Anaemia [Unknown]
